FAERS Safety Report 5159022-8 (Version None)
Quarter: 2006Q4

REPORT INFORMATION
  Report Type: 
  Country: None (occurrence: None)
  Receive Date: 20061117
  Receipt Date: 20061102
  Transmission Date: 20070319
  Serious: Yes (Death)
  Sender: FDA-Public Use
  Company Number: 061106-0000984

PATIENT
  Age: 40 Year

DRUGS (3)
  1. METHAMPHETAMINE HYDROCHLORIDE [Suspect]
     Indication: COMPLETED SUICIDE
     Dosage: PO
     Route: 048
  2. BUPROPION HCL [Suspect]
     Indication: COMPLETED SUICIDE
     Dosage: INGESTION
     Route: 048
  3. TRAZODONE HCL [Suspect]
     Indication: COMPLETED SUICIDE
     Dosage: PO
     Route: 048

REACTIONS (3)
  - COMPLETED SUICIDE [None]
  - INTENTIONAL DRUG MISUSE [None]
  - SELF INJURIOUS BEHAVIOUR [None]
